FAERS Safety Report 13954380 (Version 1)
Quarter: 2017Q3

REPORT INFORMATION
  Report Type: Spontaneous
  Country: US (occurrence: US)
  Receive Date: 20170909
  Receipt Date: 20170909
  Transmission Date: 20171128
  Serious: Yes (Other)
  Sender: FDA-Public Use
  Company Number: None

PATIENT
  Age: 61 Year
  Sex: Female
  Weight: 69.75 kg

DRUGS (13)
  1. TRIMETHOPRIM. [Concomitant]
     Active Substance: TRIMETHOPRIM
  2. DEXILANT [Concomitant]
     Active Substance: DEXLANSOPRAZOLE
  3. NERIUM EHT [Concomitant]
  4. MORPHINE ER [Concomitant]
     Active Substance: MORPHINE
  5. AZELASTINE [Concomitant]
     Active Substance: AZELASTINE
  6. AMITIZA [Concomitant]
     Active Substance: LUBIPROSTONE
  7. TIZANIDINE. [Concomitant]
     Active Substance: TIZANIDINE
  8. PROBOTICS [Concomitant]
  9. MORPHINE IR [Concomitant]
     Active Substance: MORPHINE
  10. BC (ASPIRIN\CAFFEINE) [Concomitant]
     Active Substance: ASPIRIN\CAFFEINE
  11. GABAPENTIN. [Suspect]
     Active Substance: GABAPENTIN
     Indication: NEURALGIA
     Dosage: ?          QUANTITY:2 CAPSULE(S); TWICE A DAY ORAL?
     Route: 048
  12. MYREBETRIQ ER [Concomitant]
  13. MIRALAX [Concomitant]
     Active Substance: POLYETHYLENE GLYCOL 3350

REACTIONS (1)
  - Fibroma [None]

NARRATIVE: CASE EVENT DATE: 20161001
